FAERS Safety Report 9559278 (Version 1)
Quarter: 2013Q3

REPORT INFORMATION
  Report Type: Spontaneous
  Country: US (occurrence: None)
  Receive Date: 20130913
  Receipt Date: 20130913
  Transmission Date: 20140515
  Serious: No
  Sender: FDA-Public Use
  Company Number: 1000046294

PATIENT
  Age: 71 Year
  Sex: Female

DRUGS (7)
  1. DALIRESP [Suspect]
     Indication: CHRONIC OBSTRUCTIVE PULMONARY DISEASE
     Route: 048
     Dates: start: 20130624
  2. BROVANA (ARFORMOTEROL TARTRATE) [Concomitant]
  3. BUDESONIDE (BUDESONIDE) [Concomitant]
  4. SPIRIVA (TIOTROPIUM BROMIDE) (TIOTROPIUM BROMIDE) [Concomitant]
  5. LISINOPRIL (LISINOPRIL) [Concomitant]
  6. ATENOLOL (ATENOLOL) [Concomitant]
  7. OMEPRAZOLE (OMEPRAZOLE) [Concomitant]

REACTIONS (2)
  - Insomnia [None]
  - Nausea [None]
